FAERS Safety Report 8518482-2 (Version None)
Quarter: 2012Q3

REPORT INFORMATION
  Report Type: 
  Country: None (occurrence: None)
  Receive Date: 20120718
  Receipt Date: 20120405
  Transmission Date: 20120928
  Serious: No
  Sender: FDA-Public Use
  Company Number: US-BRISTOL-MYERS SQUIBB COMPANY-16507238

PATIENT
  Age: 79 Year
  Sex: Female
  Weight: 62 kg

DRUGS (2)
  1. TOPROL-XL [Concomitant]
  2. COUMADIN [Suspect]
     Dosage: 1 DF:7.5MG 3 TIMES A WEEK,5MG 4TIMES A WEEK 7.5MG,5MG EXP DATE:31OCT2012
     Dates: start: 19960101

REACTIONS (1)
  - INTERNATIONAL NORMALISED RATIO FLUCTUATION [None]
